FAERS Safety Report 4791066-8 (Version None)
Quarter: 2005Q4

REPORT INFORMATION
  Report Type: 
  Country: None (occurrence: None)
  Receive Date: 20051005
  Receipt Date: 20050929
  Transmission Date: 20060501
  Serious: Yes (Death)
  Sender: FDA-Public Use
  Company Number: 163-20785-05050189

PATIENT
  Age: 85 Year
  Sex: Male

DRUGS (1)
  1. THALOMID [Suspect]
     Indication: PROSTATE CANCER
     Dosage: 200 MG, DAILY, ORAL
     Route: 048
     Dates: start: 20050217, end: 20050510

REACTIONS (5)
  - LUNG DISORDER [None]
  - MALIGNANT NEOPLASM PROGRESSION [None]
  - NEUROPATHY PERIPHERAL [None]
  - PROSTATE CANCER [None]
  - VOMITING [None]
